FAERS Safety Report 21407173 (Version 1)
Quarter: 2022Q4

REPORT INFORMATION
  Report Type: Spontaneous
  Country: US (occurrence: None)
  Receive Date: 20221003
  Receipt Date: 20221003
  Transmission Date: 20230112
  Serious: Yes (Other)
  Sender: FDA-Public Use
  Company Number: None

PATIENT
  Age: 53 Year
  Sex: Female
  Weight: 54.45 kg

DRUGS (10)
  1. HUMIRA [Suspect]
     Active Substance: ADALIMUMAB
     Indication: Rheumatoid arthritis
     Dosage: FREQUENCY : EVERY OTHER WEEK?OTHER ROUTE : LOADED PEN INJECTION INTO FATTY AREA?
     Route: 050
     Dates: start: 20220502, end: 20220813
  2. IUD NOS [Concomitant]
     Active Substance: COPPER OR LEVONORGESTREL
  3. ADDERALL [Concomitant]
     Active Substance: AMPHETAMINE ASPARTATE\AMPHETAMINE SULFATE\DEXTROAMPHETAMINE SACCHARATE\DEXTROAMPHETAMINE SULFATE
  4. Excedrine [Concomitant]
  5. TYLENOL [Concomitant]
     Active Substance: ACETAMINOPHEN
  6. ADVIL [Concomitant]
     Active Substance: IBUPROFEN
  7. multi-vitamins [Concomitant]
  8. moringa [Concomitant]
  9. collegen [Concomitant]
  10. SUPER GREENS [Concomitant]

REACTIONS (4)
  - Abdominal pain [None]
  - Pelvic pain [None]
  - Muscle spasms [None]
  - Muscle spasms [None]

NARRATIVE: CASE EVENT DATE: 20220813
